FAERS Safety Report 8113421-0 (Version None)
Quarter: 2012Q1

REPORT INFORMATION
  Report Type: 
  Country: None (occurrence: None)
  Receive Date: 20120203
  Receipt Date: 20120201
  Transmission Date: 20120608
  Serious: Yes (Life-Threatening, Hospitalization, Disabling, Other)
  Sender: FDA-Public Use
  Company Number: PHFR2011GB05889

PATIENT
  Sex: Female
  Weight: 71 kg

DRUGS (4)
  1. HYOSCINE HYDROBROMIDE [Concomitant]
     Indication: SALIVARY HYPERSECRETION
     Dosage: 900 UG, UNK
     Route: 048
     Dates: start: 20070601
  2. ARIPIPRAZOLE [Concomitant]
     Indication: SCHIZOPHRENIA
     Dosage: 15 MG, UNK
     Route: 048
     Dates: start: 20080206
  3. TOLTERODINE TARTRATE [Concomitant]
     Indication: URINARY INCONTINENCE
     Dosage: 2 MG, UNK
     Route: 048
     Dates: start: 20100601
  4. CLOZARIL [Suspect]
     Indication: SCHIZOPHRENIA
     Dosage: 400 MG, UNK
     Route: 048
     Dates: start: 20060701

REACTIONS (9)
  - SEPSIS [None]
  - INFECTION [None]
  - OSTEOMYELITIS [None]
  - BLOOD UREA INCREASED [None]
  - ANAEMIA [None]
  - VITAMIN B12 INCREASED [None]
  - C-REACTIVE PROTEIN INCREASED [None]
  - SERUM FERRITIN INCREASED [None]
  - BLOOD ALKALINE PHOSPHATASE INCREASED [None]
